FAERS Safety Report 8417586-2 (Version None)
Quarter: 2012Q2

REPORT INFORMATION
  Report Type: 
  Country: None (occurrence: None)
  Receive Date: 20120606
  Receipt Date: 20120522
  Transmission Date: 20120825
  Serious: Yes (Other)
  Sender: FDA-Public Use
  Company Number: CHPA2012US011435

PATIENT
  Age: 87 Year
  Sex: Female

DRUGS (4)
  1. MUSCLE RELAXANTS [Concomitant]
     Dosage: UNK, UNK
  2. EXCEDRIN EXTRA STRENGTH TABLETS [Suspect]
     Indication: PAIN
     Dosage: 8 DF, QD
     Route: 048
     Dates: start: 19720101
  3. MAALOX                                  /USA/ [Concomitant]
     Dosage: UNK, UNK
  4. BUFFERIN [Concomitant]
     Dosage: UNK, UNK

REACTIONS (5)
  - THERAPEUTIC RESPONSE UNEXPECTED [None]
  - BLINDNESS [None]
  - WRONG TECHNIQUE IN DRUG USAGE PROCESS [None]
  - INCORRECT DRUG ADMINISTRATION DURATION [None]
  - OFF LABEL USE [None]
